FAERS Safety Report 8543507-8 (Version None)
Quarter: 2012Q3

REPORT INFORMATION
  Report Type: 
  Country: None (occurrence: None)
  Receive Date: 20120727
  Receipt Date: 20120724
  Transmission Date: 20120928
  Serious: Yes (Death, Other)
  Sender: FDA-Public Use
  Company Number: PHHY2011JP35084

PATIENT
  Sex: Male

DRUGS (4)
  1. ALLOPURINOL [Concomitant]
     Dosage: 100 MG, UNK
     Route: 048
     Dates: start: 20071121
  2. NORVASC [Concomitant]
     Dosage: 2.5 MG
     Route: 048
     Dates: start: 20071121
  3. DIOVAN [Suspect]
     Indication: HYPERTENSION
     Dosage: 160 MG, UNK
     Route: 048
     Dates: start: 20090608
  4. PLAVIX [Concomitant]
     Dosage: 75 MG
     Route: 048
     Dates: start: 20071121

REACTIONS (3)
  - BLOOD PRESSURE DIASTOLIC DECREASED [None]
  - CEREBROVASCULAR ACCIDENT [None]
  - LUNG NEOPLASM MALIGNANT [None]
